FAERS Safety Report 8120641-8 (Version None)
Quarter: 2012Q1

REPORT INFORMATION
  Report Type: 
  Country: None (occurrence: None)
  Receive Date: 20120207
  Receipt Date: 20120205
  Transmission Date: 20120608
  Serious: Yes (Hospitalization, Disabling, Other)
  Sender: FDA-Public Use
  Company Number: CZ-ROCHE-696689

PATIENT
  Sex: Male

DRUGS (4)
  1. IRINOTECAN HCL [Concomitant]
  2. AVASTIN [Suspect]
     Indication: COLORECTAL CANCER
     Dosage: DODAGE: 5 MG/KG
     Route: 065
     Dates: start: 20090915, end: 20100514
  3. LEUCOVORIN CALCIUM [Concomitant]
  4. FLUOROURACIL [Concomitant]

REACTIONS (3)
  - PELVIC ABSCESS [None]
  - PYREXIA [None]
  - DISEASE PROGRESSION [None]
